FAERS Safety Report 18393593 (Version 1)
Quarter: 2020Q4

REPORT INFORMATION
  Report Type: Spontaneous
  Country: US (occurrence: US)
  Receive Date: 20201016
  Receipt Date: 20201016
  Transmission Date: 20210114
  Serious: Yes (Other)
  Sender: FDA-Public Use
  Company Number: US-PFIZER INC-2019139571

PATIENT
  Age: 71 Year
  Sex: Male
  Weight: 112 kg

DRUGS (6)
  1. LYRICA [Suspect]
     Active Substance: PREGABALIN
     Indication: PAIN IN EXTREMITY
  2. LYRICA [Suspect]
     Active Substance: PREGABALIN
     Indication: BACK PAIN
     Dosage: 50 MG, 1X/DAY (AT NIGHT)
     Route: 048
     Dates: start: 20120104
  3. LYRICA [Suspect]
     Active Substance: PREGABALIN
     Indication: ARTHRALGIA
  4. REPATHA [Concomitant]
     Active Substance: EVOLOCUMAB
     Dosage: 140 MG (EVERY 2 WEEKS)
  5. LYRICA [Suspect]
     Active Substance: PREGABALIN
     Indication: LEFT VENTRICULAR HYPERTROPHY
  6. LYRICA [Suspect]
     Active Substance: PREGABALIN
     Indication: DIABETIC NEUROPATHY

REACTIONS (4)
  - Weight increased [Unknown]
  - Myocardial infarction [Unknown]
  - Plasma cell myeloma [Unknown]
  - Atrial fibrillation [Unknown]

NARRATIVE: CASE EVENT DATE: 201906
